FAERS Safety Report 10542257 (Version 1)
Quarter: 2014Q4

REPORT INFORMATION
  Report Type: Spontaneous
  Country: US (occurrence: None)
  Receive Date: 20141010
  Receipt Date: 20141010
  Transmission Date: 20150529
  Serious: No
  Sender: FDA-Public Use
  Company Number: 163-POMAL-14054027

PATIENT
  Age: 61 Year
  Sex: Male
  Weight: 72.6 kg

DRUGS (17)
  1. DAPSONE (DAPSONE) [Concomitant]
  2. MULTIVITAMINS [Concomitant]
     Active Substance: VITAMINS
  3. DEXAMETHASONE. [Suspect]
     Active Substance: DEXAMETHASONE
     Indication: PRODUCT USED FOR UNKNOWN INDICATION
  4. ACYCLOVIR (ACICLOVIR) [Concomitant]
  5. POMALYST [Suspect]
     Active Substance: POMALIDOMIDE
     Indication: PLASMA CELL MYELOMA
     Route: 048
     Dates: start: 20131029
  6. CALCIUM (CALCIUM) [Concomitant]
     Active Substance: CALCIUM
  7. FLUCONAZOLE (FLUCONAZOLE) [Concomitant]
     Active Substance: FLUCONAZOLE
  8. VITAMIN D3 [Concomitant]
     Active Substance: CHOLECALCIFEROL
  9. VELCADE [Concomitant]
     Active Substance: BORTEZOMIB
  10. CYTOXAN [Concomitant]
     Active Substance: CYCLOPHOSPHAMIDE
  11. ASPIRIN. [Concomitant]
     Active Substance: ASPIRIN
  12. LISINOPRIL (LISINOPRIL) [Concomitant]
     Active Substance: LISINOPRIL
  13. MILK THISTLE (MILK THISTLE ADVANTAGE) [Concomitant]
  14. PAMIDRONATE (PAMIDRONATE DISODIUM) [Concomitant]
  15. PRILOSEC (OMEPRAZOLE) [Concomitant]
     Active Substance: OMEPRAZOLE MAGNESIUM
  16. LOVENOX (HEPARIN-FRACTION, SODIUM SALT) [Concomitant]
  17. TYLENOL [Concomitant]
     Active Substance: ACETAMINOPHEN

REACTIONS (3)
  - Pain [None]
  - Constipation [None]
  - Abdominal pain upper [None]
